FAERS Safety Report 4711575-7 (Version None)
Quarter: 2005Q3

REPORT INFORMATION
  Report Type: 
  Country: None (occurrence: None)
  Receive Date: 20050708
  Receipt Date: 20050708
  Transmission Date: 20060218
  Serious: Yes (Life-Threatening, Disabling)
  Sender: FDA-Public Use
  Company Number: None

PATIENT
  Sex: Female
  Weight: 68.9467 kg

DRUGS (5)
  1. ENBREL [Suspect]
     Indication: RHEUMATOID ARTHRITIS
     Dosage: 25 MG SUBCUT 2/WEEK
     Route: 058
     Dates: start: 20031101, end: 20050301
  2. METHOTREXATE [Concomitant]
  3. TOPROL-XL [Concomitant]
  4. VIOXX [Concomitant]
  5. ESTRADIOL [Concomitant]

REACTIONS (2)
  - MULTIPLE SCLEROSIS [None]
  - MYELITIS TRANSVERSE [None]
